FAERS Safety Report 9133045 (Version 1)
Quarter: 2013Q1

REPORT INFORMATION
  Report Type: Report from Study
  Country: IE (occurrence: IE)
  Receive Date: 20130301
  Receipt Date: 20130301
  Transmission Date: 20140127
  Serious: Yes (Hospitalization)
  Sender: FDA-Public Use
  Company Number: IE-ASTRAZENECA-2013SE13216

PATIENT
  Sex: Female

DRUGS (3)
  1. SYNAGIS [Suspect]
     Indication: TRACHEO-OESOPHAGEAL FISTULA
     Route: 030
     Dates: start: 20121026
  2. ZANTAC [Concomitant]
  3. LOSEC [Concomitant]

REACTIONS (6)
  - Vomiting [Recovered/Resolved]
  - Malaise [Unknown]
  - Cough [Unknown]
  - Aspiration [Unknown]
  - Gastrooesophageal reflux disease [Unknown]
  - Pyrexia [Recovered/Resolved]
